FAERS Safety Report 18846003 (Version 1)
Quarter: 2021Q1

REPORT INFORMATION
  Report Type: Spontaneous
  Country: JP (occurrence: JP)
  Receive Date: 20210203
  Receipt Date: 20210203
  Transmission Date: 20210419
  Serious: Yes (Other)
  Sender: FDA-Public Use
  Company Number: JP-EXELIXIS-CABO-20031622

PATIENT
  Age: 7 Decade
  Sex: Male

DRUGS (2)
  1. CABOMETYX [Suspect]
     Active Substance: CABOZANTINIB S-MALATE
     Dosage: 40 MG, QD
     Route: 048
  2. CABOMETYX [Suspect]
     Active Substance: CABOZANTINIB S-MALATE
     Indication: RENAL CELL CARCINOMA RECURRENT
     Dosage: 20 MG, QD
     Route: 048
     Dates: start: 20200619

REACTIONS (4)
  - Dry skin [Unknown]
  - Disease progression [Unknown]
  - Nausea [Recovering/Resolving]
  - Renal cell carcinoma recurrent [Unknown]

NARRATIVE: CASE EVENT DATE: 202009
